FAERS Safety Report 5562483-3 (Version None)
Quarter: 2007Q4

REPORT INFORMATION
  Report Type: 
  Country: None (occurrence: None)
  Receive Date: 20071215
  Receipt Date: 20061215
  Transmission Date: 20080405
  Serious: No
  Sender: FDA-Public Use
  Company Number: US-AMGEN-US196731

PATIENT
  Sex: Female

DRUGS (4)
  1. ENBREL [Suspect]
     Indication: PSORIATIC ARTHROPATHY
     Route: 058
     Dates: start: 20060523
  2. ENBREL [Suspect]
     Indication: PSORIASIS
  3. VICODIN [Concomitant]
     Dates: start: 20040101
  4. AMBIEN [Concomitant]
     Route: 065

REACTIONS (5)
  - DRY EYE [None]
  - EYE PRURITUS [None]
  - EYE SWELLING [None]
  - FLUSHING [None]
  - PSORIASIS [None]
